FAERS Safety Report 6175595-0 (Version None)
Quarter: 2009Q2

REPORT INFORMATION
  Report Type: 
  Country: None (occurrence: None)
  Receive Date: 20090429
  Receipt Date: 20090422
  Transmission Date: 20091009
  Serious: Yes (Disabling)
  Sender: FDA-Public Use
  Company Number: 2009SP008698

PATIENT
  Age: 76 Year
  Sex: Female
  Weight: 90 kg

DRUGS (5)
  1. LORATADINE [Suspect]
     Indication: HYPERSENSITIVITY
     Dosage: 10 MG;QD;PO
     Route: 048
     Dates: start: 20081001, end: 20081201
  2. ASPIRIN [Concomitant]
  3. CLENIL /00212602/ [Concomitant]
  4. LOSARTAN POSTASSIUM [Concomitant]
  5. VENTOLIN [Concomitant]

REACTIONS (1)
  - MUSCLE SPASMS [None]
